FAERS Safety Report 18980629 (Version 1)
Quarter: 2021Q1

REPORT INFORMATION
  Report Type: Spontaneous
  Country: US (occurrence: US)
  Receive Date: 20210305
  Receipt Date: 20210305
  Transmission Date: 20210420
  Serious: Yes (Other)
  Sender: FDA-Public Use
  Company Number: None

PATIENT
  Age: 68 Year
  Sex: Male
  Weight: 71.5 kg

DRUGS (1)
  1. TRIFERIC [Suspect]
     Active Substance: FERRIC PYROPHOSPHATE CITRATE
     Indication: HAEMODIALYSIS
     Dosage: ?          QUANTITY:1PK?25 GALLS OF H2;OTHER FREQUENCY:EVERY DIALYSIS TX.;OTHER ROUTE:ADMINISTERED VIA THE BICARB CENTRAL LOOP?
     Dates: start: 20210209, end: 20210211

REACTIONS (2)
  - Haemodialysis [None]
  - Thrombosis in device [None]

NARRATIVE: CASE EVENT DATE: 20210209
